FAERS Safety Report 5880598-7 (Version None)
Quarter: 2008Q3

REPORT INFORMATION
  Report Type: 
  Country: None (occurrence: None)
  Receive Date: 20080912
  Receipt Date: 20080606
  Transmission Date: 20090109
  Serious: No
  Sender: FDA-Public Use
  Company Number: US-ABBOTT-08P-163-0454983-00

PATIENT
  Sex: Female
  Weight: 70.37 kg

DRUGS (4)
  1. HUMIRA [Suspect]
     Indication: ANKYLOSING SPONDYLITIS
     Route: 058
     Dates: start: 20080101
  2. DICLOFENAC [Concomitant]
     Indication: ANTIINFLAMMATORY THERAPY
     Route: 048
  3. BLACK COHOSH OVER THE COUNTER HERBAL [Concomitant]
     Indication: HOT FLUSH
     Route: 048
  4. EYE DROPS FOR FLARE UPS - PRED FORTE [Concomitant]
     Indication: ANTIINFLAMMATORY THERAPY
     Dosage: BOTH EYES

REACTIONS (1)
  - HERPES ZOSTER [None]
